FAERS Safety Report 5374517-X (Version None)
Quarter: 2007Q2

REPORT INFORMATION
  Report Type: 
  Country: None (occurrence: None)
  Receive Date: 20070629
  Receipt Date: 20070625
  Transmission Date: 20071010
  Serious: Yes (Other)
  Sender: FDA-Public Use
  Company Number: US-JNJFOC-20070605155

PATIENT
  Age: 39 Year
  Sex: Male
  Weight: 90.72 kg

DRUGS (1)
  1. LEVAQUIN [Suspect]
     Indication: PHARYNGOLARYNGEAL PAIN
     Route: 048

REACTIONS (6)
  - ANXIETY [None]
  - DIZZINESS [None]
  - HEADACHE [None]
  - HYPOAESTHESIA [None]
  - NAUSEA [None]
  - THIRST [None]
